FAERS Safety Report 6127743-6 (Version None)
Quarter: 2009Q1

REPORT INFORMATION
  Report Type: 
  Country: None (occurrence: None)
  Receive Date: 20090323
  Receipt Date: 20090312
  Transmission Date: 20090719
  Serious: Yes (Other)
  Sender: FDA-Public Use
  Company Number: DE-AMGEN-UK280591

PATIENT
  Sex: Male
  Weight: 110 kg

DRUGS (6)
  1. PANITUMUMAB [Suspect]
     Indication: COLORECTAL CANCER
     Route: 042
     Dates: start: 20080305
  2. IRINOTECAN HCL [Concomitant]
     Route: 065
     Dates: start: 20080305
  3. FLUOROURACIL [Concomitant]
     Route: 065
     Dates: start: 20080305
  4. FOLINIC ACID [Concomitant]
     Route: 065
     Dates: start: 20080305
  5. MINOCYCLINE HCL [Concomitant]
     Route: 065
     Dates: start: 20080515
  6. FUCIDINE CAP [Concomitant]
     Route: 065
     Dates: start: 20080515

REACTIONS (1)
  - DEEP VEIN THROMBOSIS [None]
